FAERS Safety Report 14353762 (Version 1)
Quarter: 2018Q1

REPORT INFORMATION
  Report Type: Spontaneous
  Country: US (occurrence: US)
  Receive Date: 20180105
  Receipt Date: 20180105
  Transmission Date: 20180509
  Serious: No
  Sender: FDA-Public Use
  Company Number: US-DRREDDYS-USA/USA/17/0086765

PATIENT
  Age: 61 Year
  Sex: Male
  Weight: 72.1 kg

DRUGS (3)
  1. HABITROL [Suspect]
     Active Substance: NICOTINE
     Route: 062
  2. HABITROL [Suspect]
     Active Substance: NICOTINE
     Indication: SMOKING CESSATION THERAPY
     Route: 062
  3. HABITROL [Suspect]
     Active Substance: NICOTINE
     Route: 062

REACTIONS (4)
  - Nicotine dependence [Unknown]
  - Intentional product use issue [None]
  - Expired product administered [Unknown]
  - Treatment noncompliance [Unknown]
